FAERS Safety Report 22626333 (Version 1)
Quarter: 2023Q2

REPORT INFORMATION
  Report Type: Spontaneous
  Country: IT (occurrence: IT)
  Receive Date: 20230621
  Receipt Date: 20230621
  Transmission Date: 20230722
  Serious: Yes (Hospitalization, Other)
  Sender: FDA-Public Use
  Company Number: None

PATIENT
  Age: 81 Year
  Sex: Male

DRUGS (1)
  1. IBUPROFEN [Suspect]
     Active Substance: IBUPROFEN
     Indication: Arthralgia
     Dosage: UNK, TID (1 CP X 3/DAY)
     Route: 048
     Dates: start: 20230411, end: 20230414

REACTIONS (3)
  - Anaemia [Recovering/Resolving]
  - Gastric ulcer [Recovering/Resolving]
  - Helicobacter gastritis [Recovering/Resolving]

NARRATIVE: CASE EVENT DATE: 20230414
